FAERS Safety Report 18625564 (Version 1)
Quarter: 2020Q4

REPORT INFORMATION
  Report Type: Spontaneous
  Country: ES (occurrence: ES)
  Receive Date: 20201217
  Receipt Date: 20201217
  Transmission Date: 20210114
  Serious: Yes (Hospitalization)
  Sender: FDA-Public Use
  Company Number: ES-AUROBINDO-AUR-APL-2020-047169

PATIENT
  Age: 71 Year
  Sex: Male
  Weight: 100.5 kg

DRUGS (11)
  1. AFLIBERCEPT [Suspect]
     Active Substance: AFLIBERCEPT
     Indication: COLON CANCER METASTATIC
     Dosage: 450 MILLIGRAM, 2 WEEK (450 MG, QOW)
     Route: 042
     Dates: start: 20200609, end: 20200609
  2. ENALAPRIL [Concomitant]
     Active Substance: ENALAPRIL
     Indication: HYPERTENSION
     Dosage: 20 MILLIGRAM
     Route: 048
     Dates: start: 201910
  3. FLUOROURACIL. [Suspect]
     Active Substance: FLUOROURACIL
     Indication: COLON CANCER METASTATIC
     Dosage: 600 MILLIGRAM, 2 WEEK (600 MG, QOW)
     Route: 040
     Dates: start: 20200609, end: 20200609
  4. IRINOTECAN [Suspect]
     Active Substance: IRINOTECAN
     Indication: COLON CANCER METASTATIC
     Dosage: 300 MILLIGRAM, 2 WEEK (300 MG, QOW)
     Route: 042
     Dates: start: 20200609, end: 20200609
  5. IRINOTECAN [Suspect]
     Active Substance: IRINOTECAN
     Dosage: 300 MILLIGRAM,2 WEEK (300 MG, QOW)
     Route: 042
     Dates: start: 20200811, end: 20200811
  6. FLUOROURACIL. [Suspect]
     Active Substance: FLUOROURACIL
     Dosage: 4000 MILLIGRAM, 2 WEEK (4000 MG, QOW)
     Route: 042
     Dates: start: 20200609, end: 20200609
  7. AFLIBERCEPT [Suspect]
     Active Substance: AFLIBERCEPT
     Dosage: 450 MILLIGRAM, 2 WEEK (450, QOW)
     Route: 042
     Dates: start: 20200811, end: 20200811
  8. FLUOROURACIL. [Suspect]
     Active Substance: FLUOROURACIL
     Dosage: 600 MILLIGRAM, 2 WEEK (600 MG, QOW)
     Route: 040
     Dates: start: 20200811, end: 20200811
  9. FLUOROURACIL. [Suspect]
     Active Substance: FLUOROURACIL
     Dosage: 4000 MILLIGRAM, 2 WEEK (4000 MG, QOW)
     Route: 042
     Dates: start: 20200811, end: 20200811
  10. FOLINIC ACID [Suspect]
     Active Substance: LEUCOVORIN
     Indication: COLON CANCER METASTATIC
     Dosage: 800 MILLIGRAM, 2 WEEK (800 MG, QOW)
     Route: 042
     Dates: start: 20200609, end: 20200609
  11. FOLINIC ACID [Suspect]
     Active Substance: LEUCOVORIN
     Dosage: 800 MILLIGRAM, 2 WEEK (800 MG, QOW)
     Route: 042
     Dates: start: 20200811, end: 20200811

REACTIONS (2)
  - Pulmonary embolism [Recovered/Resolved]
  - Musculoskeletal chest pain [Unknown]

NARRATIVE: CASE EVENT DATE: 20200825
